FAERS Safety Report 5359341-6 (Version None)
Quarter: 2007Q2

REPORT INFORMATION
  Report Type: 
  Country: None (occurrence: None)
  Receive Date: 20070615
  Receipt Date: 20070604
  Transmission Date: 20071010
  Serious: Yes (Hospitalization, Other)
  Sender: FDA-Public Use
  Company Number: US-PFIZER INC-2005060723

PATIENT
  Sex: Female

DRUGS (2)
  1. CELEBREX [Suspect]
     Indication: ACCIDENT
     Dates: start: 20010901, end: 20030401
  2. BEXTRA [Suspect]
     Indication: ARTHRITIS
     Dates: start: 20010901, end: 20030401

REACTIONS (7)
  - ANGIOPATHY [None]
  - ARRHYTHMIA [None]
  - CARDIAC DISORDER [None]
  - CEREBROVASCULAR ACCIDENT [None]
  - MYOCARDIAL INFARCTION [None]
  - SURGERY [None]
  - THROMBOSIS [None]
